FAERS Safety Report 15296690 (Version 10)
Quarter: 2019Q4

REPORT INFORMATION
  Report Type: Report from Study
  Country: US (occurrence: US)
  Receive Date: 20180820
  Receipt Date: 20191122
  Transmission Date: 20200122
  Serious: No
  Sender: FDA-Public Use
  Company Number: US-TESARO, INC-US-2018TSO02072

PATIENT
  Age: 64 Year
  Sex: Female
  Weight: 76 kg

DRUGS (10)
  1. NIRAPARIB CAPSULE [Suspect]
     Active Substance: NIRAPARIB
     Dosage: 200 MG, QD
     Dates: start: 20191028, end: 20191103
  2. NIRAPARIB CAPSULE [Suspect]
     Active Substance: NIRAPARIB
     Dosage: 100 MG, QD
     Dates: start: 20191104
  3. DOCUSATE SODIUM. [Concomitant]
     Active Substance: DOCUSATE SODIUM
     Indication: PRODUCT USED FOR UNKNOWN INDICATION
     Dosage: UNK
     Dates: start: 20180328
  4. XARELTO [Concomitant]
     Active Substance: RIVAROXABAN
     Indication: PRODUCT USED FOR UNKNOWN INDICATION
     Dosage: UNK
     Dates: start: 20180328
  5. NIRAPARIB CAPSULE [Suspect]
     Active Substance: NIRAPARIB
     Indication: CERVIX CARCINOMA
     Dosage: 300 MG, QD
     Route: 048
     Dates: start: 20180328
  6. NIRAPARIB CAPSULE [Suspect]
     Active Substance: NIRAPARIB
     Indication: OVARIAN CANCER
     Dosage: 300 MG, UNK
     Dates: start: 201806
  7. GABAPENTIN. [Concomitant]
     Active Substance: GABAPENTIN
     Indication: PRODUCT USED FOR UNKNOWN INDICATION
     Dosage: UNK
     Dates: start: 20180328
  8. NIRAPARIB CAPSULE [Suspect]
     Active Substance: NIRAPARIB
     Dosage: 200 MG, QD
     Route: 048
     Dates: start: 20181025
  9. NIRAPARIB CAPSULE [Suspect]
     Active Substance: NIRAPARIB
     Dosage: 200 MG, DAILY
     Route: 048
  10. NIRAPARIB CAPSULE [Suspect]
     Active Substance: NIRAPARIB
     Dosage: 200 MG, QD
     Route: 048
     Dates: end: 20191021

REACTIONS (24)
  - Platelet count decreased [Unknown]
  - Facial pain [Unknown]
  - Decreased appetite [Not Recovered/Not Resolved]
  - Hypertension [Recovering/Resolving]
  - Constipation [Recovering/Resolving]
  - Heart rate increased [Not Recovered/Not Resolved]
  - Asthenia [Unknown]
  - Blood pressure increased [Not Recovered/Not Resolved]
  - Nausea [Not Recovered/Not Resolved]
  - Red blood cell count decreased [Unknown]
  - Headache [Unknown]
  - Product use in unapproved indication [Unknown]
  - Arthralgia [Recovering/Resolving]
  - Cardiac valve disease [Not Recovered/Not Resolved]
  - Dyspnoea [Not Recovered/Not Resolved]
  - Fatigue [Not Recovered/Not Resolved]
  - Product dose omission [Unknown]
  - Skin burning sensation [Not Recovered/Not Resolved]
  - Pain in extremity [Recovering/Resolving]
  - Musculoskeletal pain [Recovering/Resolving]
  - Dermatitis acneiform [Not Recovered/Not Resolved]
  - Loss of personal independence in daily activities [Not Recovered/Not Resolved]
  - Oedema peripheral [Not Recovered/Not Resolved]
  - Vomiting [Unknown]

NARRATIVE: CASE EVENT DATE: 20180328
